FAERS Safety Report 5752766-6 (Version None)
Quarter: 2008Q2

REPORT INFORMATION
  Report Type: 
  Country: None (occurrence: None)
  Receive Date: 20080529
  Receipt Date: 20080519
  Transmission Date: 20081010
  Serious: Yes (Hospitalization, Other)
  Sender: FDA-Public Use
  Company Number: AR-PFIZER INC-2007035568

PATIENT
  Sex: Male
  Weight: 75 kg

DRUGS (2)
  1. SUTENT [Suspect]
     Indication: RENAL CANCER METASTATIC
     Route: 048
     Dates: start: 20070212, end: 20080401
  2. AMIODARONE [Concomitant]
     Route: 048

REACTIONS (15)
  - AGEUSIA [None]
  - ANAEMIA [None]
  - CEREBROVASCULAR ACCIDENT [None]
  - CONVULSION [None]
  - FATIGUE [None]
  - HYPERTENSION [None]
  - ISCHAEMIC STROKE [None]
  - JOINT INJURY [None]
  - LIMB INJURY [None]
  - MEDICATION ERROR [None]
  - PENILE HAEMORRHAGE [None]
  - PLATELET COUNT DECREASED [None]
  - URINARY TRACT INFECTION [None]
  - WEIGHT DECREASED [None]
  - WHITE BLOOD CELL COUNT DECREASED [None]
